FAERS Safety Report 7311975-5 (Version None)
Quarter: 2011Q1

REPORT INFORMATION
  Report Type: 
  Country: None (occurrence: None)
  Receive Date: 20110214
  Receipt Date: 20110204
  Transmission Date: 20110831
  Serious: Yes (Other)
  Sender: FDA-Public Use
  Company Number: JHP201100023

PATIENT

DRUGS (1)
  1. DANTROLENE SODIUM [Suspect]

REACTIONS (3)
  - PHARYNGEAL DISORDER [None]
  - MUSCULAR WEAKNESS [None]
  - ASPIRATION [None]
